FAERS Safety Report 20329109 (Version 1)
Quarter: 2022Q1

REPORT INFORMATION
  Report Type: Spontaneous
  Country: FR (occurrence: FR)
  Receive Date: 20220112
  Receipt Date: 20220112
  Transmission Date: 20220423
  Serious: Yes (Hospitalization)
  Sender: FDA-Public Use
  Company Number: None

PATIENT
  Age: 28 Year
  Sex: Female
  Weight: 58 kg

DRUGS (1)
  1. LEVOTHYROXINE SODIUM [Suspect]
     Active Substance: LEVOTHYROXINE SODIUM
     Indication: Autoimmune thyroiditis
     Dosage: SCORED TABLET
     Route: 048
     Dates: start: 20210105, end: 20210202

REACTIONS (4)
  - Musculoskeletal stiffness [Not Recovered/Not Resolved]
  - Arthralgia [Not Recovered/Not Resolved]
  - Tachycardia [Not Recovered/Not Resolved]
  - Sleep disorder [Not Recovered/Not Resolved]

NARRATIVE: CASE EVENT DATE: 20210110
